FAERS Safety Report 7118061-8 (Version None)
Quarter: 2010Q4

REPORT INFORMATION
  Report Type: 
  Country: None (occurrence: None)
  Receive Date: 20101123
  Receipt Date: 20101111
  Transmission Date: 20110411
  Serious: Yes (Hospitalization)
  Sender: FDA-Public Use
  Company Number: US-BAYER-201018226NA

PATIENT
  Age: 17 Year
  Sex: Female
  Weight: 62 kg

DRUGS (11)
  1. YAZ [Suspect]
     Indication: CONTRACEPTION
     Route: 048
     Dates: start: 20061012, end: 20071112
  2. ORTHO-NOVUM 1/35 [Concomitant]
     Indication: ORAL CONTRACEPTION
     Route: 048
     Dates: start: 20071112, end: 20080428
  3. ORTHO-NOVUM 1/35 [Concomitant]
     Route: 048
     Dates: start: 20080602
  4. CIPRO [Concomitant]
     Indication: PELVIC INFLAMMATORY DISEASE
     Dates: start: 20071112
  5. DEPAKOTE [Concomitant]
     Indication: BIPOLAR DISORDER
     Dosage: UNIT DOSE: 500 MG
     Dates: start: 20080201, end: 20090603
  6. ABILIFY [Concomitant]
  7. CONCERTA [Concomitant]
     Indication: ATTENTION DEFICIT/HYPERACTIVITY DISORDER
  8. GEODON [Concomitant]
     Indication: BIPOLAR DISORDER
     Dosage: TOTAL DAILY DOSE: 40 MG
     Dates: start: 20080101, end: 20100101
  9. NORTREL 1/35-28 [Concomitant]
  10. POTASSIUM CHLORIDE [Concomitant]
     Indication: HYPOKALAEMIA
     Route: 042
  11. ROBAXIN [Concomitant]

REACTIONS (6)
  - ABDOMINAL PAIN UPPER [None]
  - BILIARY DYSKINESIA [None]
  - CHOLECYSTITIS CHRONIC [None]
  - NAUSEA [None]
  - PERIUMBILICAL ABSCESS [None]
  - VOMITING [None]
